FAERS Safety Report 16371361 (Version 5)
Quarter: 2019Q3

REPORT INFORMATION
  Report Type: Spontaneous
  Country: JP (occurrence: JP)
  Receive Date: 20190530
  Receipt Date: 20190703
  Transmission Date: 20191004
  Serious: Yes (Hospitalization, Other)
  Sender: FDA-Public Use
  Company Number: PHHY2019JP119004

PATIENT
  Age: 1 Year
  Sex: Male
  Weight: 2.48 kg

DRUGS (1)
  1. PREDNISOLONE. [Suspect]
     Active Substance: PREDNISOLONE
     Indication: POSTPERICARDIOTOMY SYNDROME
     Dosage: 1.2 MG/KG, QD
     Route: 042
     Dates: start: 20150612

REACTIONS (3)
  - Weight gain poor [Unknown]
  - Pneumocystis jirovecii pneumonia [Recovered/Resolved]
  - Product use in unapproved indication [Unknown]

NARRATIVE: CASE EVENT DATE: 20151109
